FAERS Safety Report 13679605 (Version 1)
Quarter: 2017Q2

REPORT INFORMATION
  Report Type: Report from Study
  Country: BR (occurrence: BR)
  Receive Date: 20170622
  Receipt Date: 20170622
  Transmission Date: 20170830
  Serious: Yes (Other)
  Sender: FDA-Public Use
  Company Number: PHHY2017BR087764

PATIENT
  Sex: Female
  Weight: 67 kg

DRUGS (4)
  1. FORASEQ [Suspect]
     Active Substance: BUDESONIDE\FORMOTEROL FUMARATE
     Indication: SNEEZING
     Dosage: (FORMOTEROL FUMARATE 12 UG, BUDESONIDE 400 UG)
     Route: 065
  2. BUSONID [Suspect]
     Active Substance: BUDESONIDE
     Indication: SNEEZING
     Dosage: 50 OT (MORNING AND AT NIGHT)
     Route: 065
  3. FORASEQ [Suspect]
     Active Substance: BUDESONIDE\FORMOTEROL FUMARATE
     Indication: DYSPNOEA
  4. PREDNISONE. [Suspect]
     Active Substance: PREDNISONE
     Indication: PRODUCT USED FOR UNKNOWN INDICATION
     Route: 065

REACTIONS (5)
  - Drug use disorder [Unknown]
  - Nervousness [Recovering/Resolving]
  - Dyspnoea [Recovering/Resolving]
  - Sneezing [Recovering/Resolving]
  - Product use in unapproved indication [Unknown]
